FAERS Safety Report 21305686 (Version 1)
Quarter: 2022Q3

REPORT INFORMATION
  Report Type: Spontaneous
  Country: US (occurrence: US)
  Receive Date: 20220908
  Receipt Date: 20220908
  Transmission Date: 20221026
  Serious: No
  Sender: FDA-Public Use
  Company Number: US-009507513-2208USA006574

PATIENT
  Age: 43 Year
  Sex: Male

DRUGS (11)
  1. INTRON A [Suspect]
     Active Substance: INTERFERON ALFA-2B
     Indication: Adult T-cell lymphoma/leukaemia
     Dosage: 5 MILLION UNITS DAILY
     Route: 058
     Dates: start: 201803
  2. ISENTRESS [Suspect]
     Active Substance: RALTEGRAVIR POTASSIUM
     Indication: Adult T-cell lymphoma/leukaemia
     Dosage: UNK
     Route: 048
     Dates: start: 2018
  3. PEGINTRON [Suspect]
     Active Substance: PEGINTERFERON ALFA-2B
     Indication: Adult T-cell lymphoma/leukaemia
     Dosage: 1.5 MICROGRAM PER KILOGRAM, QW
     Dates: start: 2018
  4. ZIDOVUDINE [Concomitant]
     Active Substance: ZIDOVUDINE
     Indication: Adult T-cell lymphoma/leukaemia
     Dosage: 300 MILLIGRAM, Q8H
     Dates: start: 201803
  5. LAMIVUDINE [Concomitant]
     Active Substance: LAMIVUDINE
     Indication: Adult T-cell lymphoma/leukaemia
     Dosage: 150 MILLIGRAM, BID
     Dates: start: 201803
  6. METHOTREXATE [Concomitant]
     Active Substance: METHOTREXATE
     Indication: Adult T-cell lymphoma/leukaemia
     Dosage: UNK UNK, QW
     Route: 037
     Dates: start: 201803
  7. METHOTREXATE [Concomitant]
     Active Substance: METHOTREXATE
     Dosage: UNK UNK, EVERY 4 WEEKS
     Route: 037
     Dates: start: 2018
  8. CYTARABINE [Concomitant]
     Active Substance: CYTARABINE
     Indication: Adult T-cell lymphoma/leukaemia
     Dosage: UNK, QW
     Route: 037
     Dates: start: 201803
  9. CYTARABINE [Concomitant]
     Active Substance: CYTARABINE
     Dosage: UNK UNK, EVERY 4 WEEKS
     Route: 037
     Dates: start: 2018
  10. HYDROCORTISONE [Concomitant]
     Active Substance: HYDROCORTISONE
     Indication: Adult T-cell lymphoma/leukaemia
     Dosage: UNK, QW
     Route: 037
     Dates: start: 201803
  11. HYDROCORTISONE [Concomitant]
     Active Substance: HYDROCORTISONE
     Dosage: UNK UNK, EVERY 4 WEEKS
     Route: 037
     Dates: start: 2018

REACTIONS (1)
  - Product use in unapproved indication [Unknown]

NARRATIVE: CASE EVENT DATE: 20180301
